FAERS Safety Report 5393389-0 (Version None)
Quarter: 2007Q3

REPORT INFORMATION
  Report Type: 
  Country: None (occurrence: None)
  Receive Date: 20070718
  Receipt Date: 20070718
  Transmission Date: 20080115
  Serious: Yes (Other)
  Sender: FDA-Public Use
  Company Number: None

PATIENT
  Age: 73 Year
  Sex: Female
  Weight: 88.4514 kg

DRUGS (1)
  1. BENICAR HCT [Suspect]
     Indication: CARDIAC FAILURE CONGESTIVE
     Dates: start: 20070415, end: 20070515

REACTIONS (2)
  - PHARMACEUTICAL PRODUCT COMPLAINT [None]
  - RENAL DISORDER [None]
